FAERS Safety Report 16552215 (Version 1)
Quarter: 2019Q3

REPORT INFORMATION
  Report Type: Spontaneous
  Country: US (occurrence: US)
  Receive Date: 20190710
  Receipt Date: 20190710
  Transmission Date: 20191004
  Serious: No
  Sender: FDA-Public Use
  Company Number: US-PFIZER INC-2019290443

PATIENT
  Age: 9 Year
  Sex: Male

DRUGS (1)
  1. GENOTROPIN [Suspect]
     Active Substance: SOMATROPIN
     Indication: SEPTO-OPTIC DYSPLASIA
     Dosage: 0.7 MG, 1X/DAY

REACTIONS (4)
  - Insulin-like growth factor decreased [Unknown]
  - Blood growth hormone abnormal [Unknown]
  - Off label use [Unknown]
  - Product use in unapproved indication [Unknown]
